FAERS Safety Report 7454947-2 (Version None)
Quarter: 2011Q1

REPORT INFORMATION
  Report Type: 
  Country: None (occurrence: None)
  Receive Date: 20110302
  Receipt Date: 20110120
  Transmission Date: 20110831
  Serious: No
  Sender: FDA-Public Use
  Company Number: 025969

PATIENT
  Sex: Female

DRUGS (1)
  1. CIMZIA [Suspect]
     Dosage: (PROBABLY 400 MG SUBCUTANEOUS)
     Route: 058
     Dates: start: 20110101

REACTIONS (1)
  - JOINT STIFFNESS [None]
